FAERS Safety Report 26130186 (Version 1)
Quarter: 2025Q4

REPORT INFORMATION
  Report Type: Spontaneous
  Country: US (occurrence: None)
  Receive Date: 20251205
  Receipt Date: 20251205
  Transmission Date: 20260117
  Serious: Yes (unspecified)
  Sender: FDA-CTU
  Company Number: None

PATIENT
  Age: 60 Year
  Sex: Female
  Weight: 68 kg

DRUGS (1)
  1. BRINSUPRI [Suspect]
     Active Substance: BRENSOCATIB
     Dosage: FREQUENCY : DAILY;
     Route: 048

REACTIONS (5)
  - Rash [None]
  - Rash erythematous [None]
  - Rash [None]
  - Rash vesicular [None]
  - Eosinophil count increased [None]

NARRATIVE: CASE EVENT DATE: 20251112
